FAERS Safety Report 15101418 (Version 1)
Quarter: 2018Q2

REPORT INFORMATION
  Report Type: Spontaneous
  Country: US (occurrence: US)
  Receive Date: 20180611
  Receipt Date: 20180611
  Transmission Date: 20180711
  Serious: Yes (Other)
  Sender: FDA-Public Use
  Company Number: None

PATIENT
  Sex: Female

DRUGS (1)
  1. IBRANCE [Suspect]
     Active Substance: PALBOCICLIB
     Indication: BREAST CANCER FEMALE
     Dosage: 1 CAPSULE DAILY FOR 21 DAYS OF A 28 DAY CYCLE ORAL
     Route: 048
     Dates: start: 20160517

REACTIONS (4)
  - Nausea [None]
  - Vomiting [None]
  - Gastritis [None]
  - Abdominal pain upper [None]
